FAERS Safety Report 9521294 (Version 1)
Quarter: 2013Q3

REPORT INFORMATION
  Report Type: Spontaneous
  Country: CN (occurrence: CN)
  Receive Date: 20130913
  Receipt Date: 20130913
  Transmission Date: 20140515
  Serious: Yes (Other)
  Sender: FDA-Public Use
  Company Number: CN-JNJFOC-20130905104

PATIENT
  Age: 43 Year
  Sex: Female

DRUGS (2)
  1. SPORANOX [Suspect]
     Indication: ONYCHOMYCOSIS
     Route: 048
     Dates: start: 20130903, end: 20130907
  2. CHINESE MEDICATION [Concomitant]
     Route: 048

REACTIONS (2)
  - Weight decreased [Unknown]
  - Libido increased [Unknown]
